FAERS Safety Report 7558909-6 (Version None)
Quarter: 2011Q2

REPORT INFORMATION
  Report Type: 
  Country: None (occurrence: None)
  Receive Date: 20110525
  Receipt Date: 20110301
  Transmission Date: 20111010
  Serious: No
  Sender: FDA-Public Use
  Company Number: 324690

PATIENT
  Age: 63 Year
  Sex: Female

DRUGS (4)
  1. VICTOZA [Suspect]
     Indication: GLUCOSE TOLERANCE IMPAIRED
     Dosage: 0.6 MG, QD, SUBCUTANEOUS
     Route: 058
     Dates: start: 20110222
  2. ESTRADIOL [Concomitant]
  3. VITAMIN D NOS (VITAMIN D NOS) [Concomitant]
  4. DIOVAN [Concomitant]

REACTIONS (1)
  - FAECES DISCOLOURED [None]
